FAERS Safety Report 8602447-6 (Version None)
Quarter: 2012Q3

REPORT INFORMATION
  Report Type: 
  Country: None (occurrence: None)
  Receive Date: 20120817
  Receipt Date: 19950405
  Transmission Date: 20120928
  Serious: Yes (Hospitalization, Other)
  Sender: FDA-Public Use
  Company Number: US-ROCHE-1101245

PATIENT
  Sex: Male

DRUGS (2)
  1. ACTIVASE [Suspect]
     Indication: PULMONARY EMBOLISM
     Dates: start: 19940921
  2. HEPARIN [Concomitant]

REACTIONS (6)
  - BLOOD UREA INCREASED [None]
  - COR PULMONALE [None]
  - RENAL FAILURE [None]
  - RENAL CELL CARCINOMA [None]
  - HYPOXIA [None]
  - PNEUMONIA [None]
